FAERS Safety Report 7665334-6 (Version None)
Quarter: 2011Q3

REPORT INFORMATION
  Report Type: 
  Country: None (occurrence: None)
  Receive Date: 20110806
  Receipt Date: 20110518
  Transmission Date: 20111222
  Serious: No
  Sender: FDA-Public Use
  Company Number: US-ABBOTT-11P-163-0727445-00

PATIENT
  Sex: Male
  Weight: 81.72 kg

DRUGS (6)
  1. HYDROCHLOROTHIAZIDE [Concomitant]
     Indication: BLOOD PRESSURE
  2. NIASPAN [Suspect]
     Indication: BLOOD CHOLESTEROL
     Dates: start: 20110401, end: 20110401
  3. PRAVASTATIN [Concomitant]
     Indication: PRODUCT USED FOR UNKNOWN INDICATION
  4. MULTI-VITAMIN [Concomitant]
     Indication: PRODUCT USED FOR UNKNOWN INDICATION
  5. VITAMIN B-12 [Concomitant]
     Indication: PRODUCT USED FOR UNKNOWN INDICATION
  6. BENAZEPRIL HYDROCHLORIDE [Concomitant]
     Indication: PRODUCT USED FOR UNKNOWN INDICATION

REACTIONS (1)
  - FLUSHING [None]
